FAERS Safety Report 17562769 (Version 2)
Quarter: 2020Q4

REPORT INFORMATION
  Report Type: Spontaneous
  Country: US (occurrence: US)
  Receive Date: 20200319
  Receipt Date: 20201210
  Transmission Date: 20210113
  Serious: No
  Sender: FDA-Public Use
  Company Number: US-PFIZER INC-2020116793

PATIENT
  Age: 67 Year
  Sex: Female

DRUGS (30)
  1. AMITRIPTYLINE [Suspect]
     Active Substance: AMITRIPTYLINE
     Dosage: 25 MG, 1X/DAY(EVERY NIGHT)
  2. KRILL OIL [Suspect]
     Active Substance: DIETARY SUPPLEMENT\KRILL OIL
     Dosage: 500 MG, 1X/DAY(ONE AT BEDTIME)
  3. PHENERGAN [Suspect]
     Active Substance: PROMETHAZINE HYDROCHLORIDE
     Indication: NAUSEA
     Dosage: 25 MG, AS NEEDED
  4. PANTOPRAZOLE [Suspect]
     Active Substance: PANTOPRAZOLE
     Dosage: 40 MG, UNK(ONE, THIRTY MINUTES BEFORE I EAT)
  5. COLACE [Suspect]
     Active Substance: DOCUSATE SODIUM
     Dosage: 300 MG, 1X/DAY(EVERY NIGHT)
  6. COUMADIN [Suspect]
     Active Substance: WARFARIN SODIUM
     Dosage: 5 MG, 1X/DAY(I TAKE 5 MG, EVERY NIGHT AT BEDTIME, EXCEPT ON TUESDAYS)
  7. COUMADIN [Suspect]
     Active Substance: WARFARIN SODIUM
     Dosage: 2.5 MG, 1X/DAY(, I HAVE TO TAKE 2.5 MG, SO I TAKE ONE AND A HALF ON TUESDAYS)
  8. LETROZOLE. [Suspect]
     Active Substance: LETROZOLE
     Indication: CHEMOTHERAPY
     Dosage: 2.5 MG, 1X/DAY(ONE AT BEDTIME)
  9. ZOLPIDEM [Suspect]
     Active Substance: ZOLPIDEM TARTRATE
     Dosage: 10 MG, 1X/DAY(10 MG AT BED TIME)
  10. VERAPAMIL HCL [Suspect]
     Active Substance: VERAPAMIL HYDROCHLORIDE
     Dosage: 120 MG, UNK
  11. ASPIRIN 81 [Suspect]
     Active Substance: ASPIRIN
     Dosage: 81 MG, 1X/DAY(EVERY NIGHT )
  12. DONNATAL [Suspect]
     Active Substance: ATROPINE SULFATE\HYOSCYAMINE SULFATE\PHENOBARBITAL\SCOPOLAMINE HYDROBROMIDE
     Dosage: 16.2 MG, 3X/DAY(16.2 MG, TABLET, ONE THREE TIMES A DAY BEFORE MEALS)
  13. LISINOPRIL. [Suspect]
     Active Substance: LISINOPRIL
     Dosage: 40 MG, UNK
  14. ZOFRAN [Suspect]
     Active Substance: ONDANSETRON HYDROCHLORIDE
     Indication: VOMITING
  15. LEVOTHYROXINE SODIUM. [Suspect]
     Active Substance: LEVOTHYROXINE SODIUM
     Dosage: 0.088 MG, 1X/DAY(ONE EVERY MORNING)
  16. BIOTIN [Suspect]
     Active Substance: BIOTIN
     Dosage: 6000 UG, 1X/DAY (3000 MCG, TWO GUMMIES EVERY NIGHT)
  17. RANITIDINE. [Suspect]
     Active Substance: RANITIDINE
     Dosage: UNK
  18. ELETRIPTAN HBR [Suspect]
     Active Substance: ELETRIPTAN HYDROBROMIDE
     Indication: MIGRAINE
     Dosage: 40 MG, UNK
  19. GABAPENTIN. [Suspect]
     Active Substance: GABAPENTIN
     Dosage: 2400 MG, DAILY (300 MG, THREE IN THE MORNING, TWO IN THE AFTERNOON AND THREE AT NIGHT)
  20. ZOFRAN [Suspect]
     Active Substance: ONDANSETRON HYDROCHLORIDE
     Indication: NAUSEA
     Dosage: 25 MG, AS NEEDED
  21. FUROSEMIDE. [Suspect]
     Active Substance: FUROSEMIDE
     Dosage: 20 MG, 1X/DAY(EVERY MORNING)
  22. DOMPERIDONE [Suspect]
     Active Substance: DOMPERIDONE
     Dosage: 10 MG, UNK(TWO THIRTY MINUTES BEFORE EACH MEAL)
  23. HYDROCHLOROTHIAZIDE. [Suspect]
     Active Substance: HYDROCHLOROTHIAZIDE
     Dosage: 12.5 MG, 1X/DAY(ONE EVERY MORNING)
  24. LORATADINE. [Suspect]
     Active Substance: LORATADINE
     Indication: DRUG HYPERSENSITIVITY
     Dosage: 10 MG, 1X/DAY(10 MG AT BEDTIME, EVERY NIGHT)
  25. LORAZEPAM. [Suspect]
     Active Substance: LORAZEPAM
     Dosage: 1 MG, 1X/DAY(EVERY NIGHT)
  26. CALCIUM [Suspect]
     Active Substance: CALCIUM
     Dosage: 500 MG, DAILY((TWO GUMMIES EVERY DAY)
  27. NORCO [Suspect]
     Active Substance: ACETAMINOPHEN\HYDROCODONE BITARTRATE
     Indication: PAIN
     Dosage: UNK UNK, AS NEEDED(HYDROCODONE BITARTRATE (7.5)/PARACETAMOL (325)(TAKE IT ONE TIME AT BED TIME))
  28. NORCO [Suspect]
     Active Substance: ACETAMINOPHEN\HYDROCODONE BITARTRATE
     Indication: SURGERY
  29. POTASSIUM CHLORIDE. [Suspect]
     Active Substance: POTASSIUM CHLORIDE
     Dosage: 10 MEQ, 1X/DAY(10 MEQ, EXTENDED RELEASE CAPSULES, ONE AT BEDTIME)
  30. METOPROLOL TARTRATE. [Suspect]
     Active Substance: METOPROLOL TARTRATE
     Dosage: 25 MG, 2X/DAY

REACTIONS (2)
  - Muscle strain [Unknown]
  - Muscle spasms [Unknown]
